FAERS Safety Report 5806540-2 (Version None)
Quarter: 2008Q3

REPORT INFORMATION
  Report Type: 
  Country: None (occurrence: None)
  Receive Date: 20080710
  Receipt Date: 20080619
  Transmission Date: 20090109
  Serious: No
  Sender: FDA-Public Use
  Company Number: US-BOEHRINGER INGELHEIM GMBH, GERMANY-2008-BP-09579BP

PATIENT
  Age: 61 Year
  Sex: Female

DRUGS (1)
  1. MIRAPEX [Suspect]
     Indication: RESTLESS LEGS SYNDROME
     Route: 048
     Dates: start: 20040101, end: 20080601

REACTIONS (5)
  - BONE PAIN [None]
  - DYSKINESIA [None]
  - FOOT DEFORMITY [None]
  - MUSCULOSKELETAL DISCOMFORT [None]
  - SOMNOLENCE [None]
